FAERS Safety Report 5781815-4 (Version None)
Quarter: 2008Q2

REPORT INFORMATION
  Report Type: 
  Country: None (occurrence: None)
  Receive Date: 20080623
  Receipt Date: 20071004
  Transmission Date: 20081010
  Serious: No
  Sender: FDA-Public Use
  Company Number: US-ASTRAZENECA-2007UW23093

PATIENT
  Sex: Female

DRUGS (3)
  1. RHINOCORT [Suspect]
     Indication: MULTIPLE ALLERGIES
     Route: 045
     Dates: start: 20071002
  2. SINGULAIR [Concomitant]
  3. SUDAFED 12 HOUR [Concomitant]

REACTIONS (3)
  - DRY EYE [None]
  - HEADACHE [None]
  - NERVOUSNESS [None]
